FAERS Safety Report 11322975 (Version 8)
Quarter: 2016Q1

REPORT INFORMATION
  Report Type: Report from Study
  Country: US (occurrence: US)
  Receive Date: 20150730
  Receipt Date: 20160202
  Transmission Date: 20160525
  Serious: Yes (Other)
  Sender: FDA-Public Use
  Company Number: PHEH2015US014592

PATIENT
  Sex: Female
  Weight: 68.93 kg

DRUGS (2)
  1. GILENYA [Suspect]
     Active Substance: FINGOLIMOD HYDROCHLORIDE
     Indication: MULTIPLE SCLEROSIS
     Dosage: 0.5 MG, QD
     Route: 048
     Dates: start: 20150727
  2. GABAPENTIN. [Suspect]
     Active Substance: GABAPENTIN
     Indication: PRODUCT USED FOR UNKNOWN INDICATION
     Dosage: UNK
     Route: 065

REACTIONS (11)
  - Pyrexia [Unknown]
  - Pain [Recovered/Resolved]
  - Multiple sclerosis relapse [Recovering/Resolving]
  - Arthralgia [Recovering/Resolving]
  - Immunodeficiency [Unknown]
  - Malaise [Recovered/Resolved]
  - Cellulitis [Unknown]
  - Feeling hot [Unknown]
  - Joint swelling [Recovered/Resolved]
  - Nausea [Recovered/Resolved]
  - Dizziness [Unknown]
